FAERS Safety Report 8915132 (Version 2)
Quarter: 2013Q1

REPORT INFORMATION
  Report Type: Spontaneous
  Country: US (occurrence: US)
  Receive Date: 20121116
  Receipt Date: 20130222
  Transmission Date: 20140127
  Serious: No
  Sender: FDA-Public Use
  Company Number: US-009507513-1211USA006671

PATIENT
  Age: 71 Year
  Sex: Female

DRUGS (3)
  1. JANUMET [Suspect]
     Dosage: 50/500 BID
     Route: 048
     Dates: start: 20071212, end: 20080108
  2. JANUMET [Suspect]
     Dosage: 50/1000 BID
     Route: 048
     Dates: start: 20080109, end: 20080930
  3. JANUMET [Suspect]
     Dosage: 100/1000 BID
     Route: 048
     Dates: start: 20081001

REACTIONS (11)
  - Gastritis [Unknown]
  - Myalgia [Unknown]
  - Prescribed overdose [Unknown]
  - Therapeutic response decreased [Unknown]
  - Scan myocardial perfusion abnormal [Not Recovered/Not Resolved]
  - Ear disorder [Unknown]
  - Myalgia [Unknown]
  - Drug hypersensitivity [Unknown]
  - Microcytic anaemia [Unknown]
  - Hepatic enzyme increased [Unknown]
  - Blood pressure increased [Unknown]
